FAERS Safety Report 22279872 (Version 1)
Quarter: 2023Q2

REPORT INFORMATION
  Report Type: Spontaneous
  Country: DE (occurrence: DE)
  Receive Date: 20230503
  Receipt Date: 20230503
  Transmission Date: 20230721
  Serious: Yes (Other)
  Sender: FDA-Public Use
  Company Number: DE-002147023-NVSC2023DE099091

PATIENT
  Sex: Female

DRUGS (1)
  1. MAYZENT [Suspect]
     Active Substance: SIPONIMOD
     Indication: Secondary progressive multiple sclerosis
     Dosage: 1 DOSAGE FORM, QD
     Route: 065
     Dates: start: 202203, end: 20230113

REACTIONS (8)
  - Intracardiac thrombus [Unknown]
  - Thrombotic stroke [Recovered/Resolved]
  - Paralysis [Unknown]
  - Oedema peripheral [Unknown]
  - Blood pressure increased [Unknown]
  - Atrial septal defect [Recovered/Resolved]
  - Multiple sclerosis [Not Recovered/Not Resolved]
  - Fungal skin infection [Unknown]

NARRATIVE: CASE EVENT DATE: 20230113
